FAERS Safety Report 8603737-3 (Version None)
Quarter: 2012Q3

REPORT INFORMATION
  Report Type: 
  Country: None (occurrence: None)
  Receive Date: 20120817
  Receipt Date: 20110909
  Transmission Date: 20120928
  Serious: Yes (Other)
  Sender: FDA-Public Use
  Company Number: US-ASTRAZENECA-2007UW03203

PATIENT
  Age: 54 Year
  Sex: Female
  Weight: 69.4 kg

DRUGS (3)
  1. NOLVADEX [Concomitant]
  2. ARIMIDEX [Suspect]
     Indication: BREAST CANCER
     Route: 048
     Dates: start: 20040901, end: 20080101
  3. FASLODEX [Suspect]
     Route: 030

REACTIONS (5)
  - MUSCULOSKELETAL PAIN [None]
  - HOT FLUSH [None]
  - VULVOVAGINAL DRYNESS [None]
  - WEIGHT DECREASED [None]
  - BLOOD CHOLESTEROL INCREASED [None]
